FAERS Safety Report 15713635 (Version 1)
Quarter: 2018Q4

REPORT INFORMATION
  Report Type: Spontaneous
  Country: US (occurrence: US)
  Receive Date: 20181212
  Receipt Date: 20181212
  Transmission Date: 20190205
  Serious: Yes (Death)
  Sender: FDA-Public Use
  Company Number: None

PATIENT
  Age: 60 Year
  Sex: Female

DRUGS (4)
  1. DEXAMETHASON, MULTI VITAMIN, PROCHLORPER [Concomitant]
  2. NEULASTA [Suspect]
     Active Substance: PEGFILGRASTIM
     Indication: LIP NEOPLASM MALIGNANT STAGE UNSPECIFIED
     Dosage: ?          OTHER FREQUENCY:EVERY 14 DAYS;?
     Route: 058
     Dates: start: 20170907
  3. CAPECITABINE. [Suspect]
     Active Substance: CAPECITABINE
     Indication: LIP NEOPLASM MALIGNANT STAGE UNSPECIFIED
     Route: 048
     Dates: start: 20180320
  4. ONDANSETRON, LOPERAMIDE [Concomitant]

REACTIONS (1)
  - Death [None]

NARRATIVE: CASE EVENT DATE: 20181107
